FAERS Safety Report 15179764 (Version 1)
Quarter: 2018Q4

REPORT INFORMATION
  Report Type: Spontaneous
  Country: US (occurrence: US)
  Receive Date: 20180723
  Receipt Date: 20180723
  Transmission Date: 20190204
  Serious: No
  Sender: FDA-Public Use
  Company Number: US-TEVA-798158USA

PATIENT
  Sex: Female

DRUGS (1)
  1. LORAZEPAM TABLETS, USP CIV [Suspect]
     Active Substance: LORAZEPAM

REACTIONS (3)
  - Product solubility abnormal [Unknown]
  - Drug screen negative [Unknown]
  - Drug ineffective [Unknown]
